FAERS Safety Report 5740517-0 (Version None)
Quarter: 2008Q2

REPORT INFORMATION
  Report Type: 
  Country: None (occurrence: None)
  Receive Date: 20080513
  Receipt Date: 20080505
  Transmission Date: 20081010
  Serious: No
  Sender: FDA-Public Use
  Company Number: APP200800358

PATIENT
  Age: 39 Year
  Sex: Female

DRUGS (1)
  1. HEPARIN SODIUM INJECTION [Suspect]
     Indication: IN VITRO FERTILISATION
     Dosage: 2 WEEKS AT A TIME BEFORE IVF, SUBCUTANEOUS
     Route: 058
     Dates: start: 20080430

REACTIONS (1)
  - INJECTION SITE IRRITATION [None]
